FAERS Safety Report 5868582-0 (Version None)
Quarter: 2008Q3

REPORT INFORMATION
  Report Type: 
  Country: None (occurrence: None)
  Receive Date: 20080828
  Receipt Date: 20080812
  Transmission Date: 20090109
  Serious: Yes (Other)
  Sender: FDA-Public Use
  Company Number: DSU-2008-01227

PATIENT
  Age: 44 Year
  Sex: Female
  Weight: 82.5547 kg

DRUGS (1)
  1. BENICAR [Suspect]
     Indication: HYPERTENSION
     Dosage: 40 MG (40 MG,QD), PER ORAL
     Route: 048
     Dates: start: 20060101

REACTIONS (2)
  - BLOOD PRESSURE ABNORMAL [None]
  - ISCHAEMIA [None]
